FAERS Safety Report 25007711 (Version 1)
Quarter: 2025Q1

REPORT INFORMATION
  Report Type: Spontaneous
  Country: KR (occurrence: KR)
  Receive Date: 20250225
  Receipt Date: 20250225
  Transmission Date: 20250408
  Serious: Yes (Other)
  Sender: STRIDES
  Company Number: KR-STRIDES ARCOLAB LIMITED-2025SP002395

PATIENT
  Age: 49 Year
  Sex: Female

DRUGS (7)
  1. ETOPOSIDE [Suspect]
     Active Substance: ETOPOSIDE
     Indication: Neuroendocrine breast tumour
     Route: 065
  2. DOXORUBICIN [Suspect]
     Active Substance: DOXORUBICIN
     Indication: Neuroendocrine breast tumour
     Route: 065
  3. CYCLOPHOSPHAMIDE [Suspect]
     Active Substance: CYCLOPHOSPHAMIDE
     Indication: Neuroendocrine breast tumour
     Route: 065
  4. TAXOTERE [Suspect]
     Active Substance: DOCETAXEL
     Indication: Neuroendocrine breast tumour
     Route: 065
  5. CISPLATIN [Suspect]
     Active Substance: CISPLATIN
     Indication: Neuroendocrine breast tumour
     Route: 065
  6. PACLITAXEL [Suspect]
     Active Substance: PACLITAXEL
     Indication: Neuroendocrine breast tumour
     Route: 065
  7. CARBOPLATIN [Suspect]
     Active Substance: CARBOPLATIN
     Indication: Neuroendocrine breast tumour
     Route: 065

REACTIONS (3)
  - Disease progression [Unknown]
  - Drug ineffective for unapproved indication [Unknown]
  - Drug ineffective [Unknown]
